FAERS Safety Report 7800598-7 (Version None)
Quarter: 2011Q4

REPORT INFORMATION
  Report Type: 
  Country: None (occurrence: None)
  Receive Date: 20111006
  Receipt Date: 20110930
  Transmission Date: 20120403
  Serious: Yes (Death, Hospitalization, Other)
  Sender: FDA-Public Use
  Company Number: US-ACTELION-A-US2011-53650

PATIENT

DRUGS (2)
  1. TRACLEER [Suspect]
     Indication: PULMONARY ARTERIAL HYPERTENSION
     Dosage: UNK
     Route: 048
     Dates: start: 20080220
  2. REVATIO [Concomitant]

REACTIONS (8)
  - DECREASED APPETITE [None]
  - PULMONARY ARTERIAL HYPERTENSION [None]
  - FATIGUE [None]
  - WEIGHT DECREASED [None]
  - DEATH [None]
  - ASTHENIA [None]
  - RESPIRATORY DISTRESS [None]
  - DISEASE PROGRESSION [None]
